FAERS Safety Report 9310601 (Version 2)
Quarter: 2013Q2

REPORT INFORMATION
  Report Type: Spontaneous
  Country: US (occurrence: US)
  Receive Date: 20130527
  Receipt Date: 20130628
  Transmission Date: 20140414
  Serious: Yes (Congenital Anomaly, Other)
  Sender: FDA-Public Use
  Company Number: US-PFIZER INC-2013158328

PATIENT
  Sex: Female

DRUGS (16)
  1. ZOLOFT [Suspect]
     Indication: ANXIETY
     Dosage: UNK
     Route: 064
     Dates: start: 20020601, end: 20020907
  2. ZOLOFT [Suspect]
     Indication: DEPRESSION
     Dosage: UNK
     Route: 064
     Dates: start: 20021011, end: 20040630
  3. ZOLOFT [Suspect]
     Indication: AFFECTIVE DISORDER
  4. SERTRALINE HCL [Suspect]
     Indication: ANXIETY
     Dosage: UNK
     Route: 064
     Dates: start: 20020601, end: 20020907
  5. SERTRALINE HCL [Suspect]
     Indication: DEPRESSION
     Dosage: UNK
     Route: 064
     Dates: start: 20021011, end: 20040630
  6. SERTRALINE HCL [Suspect]
     Indication: AFFECTIVE DISORDER
  7. ORTHO-NOVUM 7/7/7 [Concomitant]
     Dosage: UNK
     Route: 064
  8. VALTREX [Concomitant]
     Dosage: UNK
     Route: 064
  9. ACYCLOVIR [Concomitant]
     Dosage: UNK
     Route: 064
  10. CELEXA [Concomitant]
     Dosage: UNK
     Route: 064
  11. AMBIEN [Concomitant]
     Dosage: UNK
     Route: 064
  12. MACROBID [Concomitant]
     Dosage: UNK
     Route: 064
  13. PROMETHAZINE [Concomitant]
     Dosage: UNK
     Route: 064
  14. CLINDAMYCIN [Concomitant]
     Dosage: UNK
     Route: 064
  15. GYNAZOLE-1 [Concomitant]
     Dosage: UNK
     Route: 064
  16. TERBUTALINE [Concomitant]
     Dosage: UNK
     Route: 064

REACTIONS (7)
  - Maternal exposure during pregnancy [Unknown]
  - Transposition of the great vessels [Unknown]
  - Congenital aortic anomaly [Unknown]
  - Ventricular septal defect [Unknown]
  - Atrial septal defect [Unknown]
  - Congenital anomaly [Unknown]
  - Pulmonary valve stenosis [Unknown]
